FAERS Safety Report 16987538 (Version 2)
Quarter: 2020Q1

REPORT INFORMATION
  Report Type: Spontaneous
  Country: US (occurrence: US)
  Receive Date: 20191104
  Receipt Date: 20200328
  Transmission Date: 20200409
  Serious: No
  Sender: FDA-Public Use
  Company Number: US-AMGEN INC.-USASP2019181555

PATIENT

DRUGS (1)
  1. AIMOVIG [Suspect]
     Active Substance: ERENUMAB-AOOE
     Indication: MIGRAINE
     Dosage: 140 MILLIGRAM
     Route: 065

REACTIONS (5)
  - Adverse event [Unknown]
  - Flushing [Not Recovered/Not Resolved]
  - Therapeutic product effect incomplete [Unknown]
  - Gastric disorder [Not Recovered/Not Resolved]
  - Migraine [Not Recovered/Not Resolved]
